FAERS Safety Report 11886429 (Version 1)
Quarter: 2016Q1

REPORT INFORMATION
  Report Type: Spontaneous
  Country: BR (occurrence: BR)
  Receive Date: 20160104
  Receipt Date: 20160104
  Transmission Date: 20160526
  Serious: Yes (Death)
  Sender: FDA-Public Use
  Company Number: BR-PFIZER INC-2015475413

PATIENT
  Sex: Female
  Weight: 1.52 kg

DRUGS (5)
  1. OXACILLIN [Suspect]
     Active Substance: OXACILLIN SODIUM
     Indication: STAPHYLOCOCCAL SCALDED SKIN SYNDROME
     Dosage: UNK
  2. CLINDAMYCIN PHOSPHATE. [Suspect]
     Active Substance: CLINDAMYCIN PHOSPHATE
     Indication: STAPHYLOCOCCAL SCALDED SKIN SYNDROME
     Dosage: UNK
  3. CEFEPIME [Suspect]
     Active Substance: CEFEPIME HYDROCHLORIDE
     Indication: STAPHYLOCOCCAL SCALDED SKIN SYNDROME
     Dosage: UNK
  4. DIPYRONE [Concomitant]
     Active Substance: DIPYRONE
     Indication: STAPHYLOCOCCAL SCALDED SKIN SYNDROME
     Dosage: UNK
  5. MORPHINE [Concomitant]
     Active Substance: MORPHINE
     Indication: STAPHYLOCOCCAL SCALDED SKIN SYNDROME
     Dosage: UNK

REACTIONS (2)
  - Drug ineffective [Fatal]
  - Sepsis [Fatal]
